FAERS Safety Report 4952358-2 (Version None)
Quarter: 2006Q1

REPORT INFORMATION
  Report Type: 
  Country: None (occurrence: None)
  Receive Date: 20060323
  Receipt Date: 20060322
  Transmission Date: 20060701
  Serious: Yes (Other)
  Sender: FDA-Public Use
  Company Number: GB-BOEHRINGER INGELHEIM PHARMACEUTICALS, INC.-2006-UK-01437UK

PATIENT
  Age: 53 Year
  Sex: Male

DRUGS (3)
  1. PRAMIPEXOLE DIHYDROCHLORIDE [Suspect]
     Indication: PARKINSON'S DISEASE
     Dosage: THREE TIMES DAILY
     Route: 048
     Dates: start: 20051014, end: 20060224
  2. SINEMET [Concomitant]
     Dosage: 250 MG THREE TIMES DAILY
  3. ESCITALOPRAM OXALATE [Concomitant]
     Indication: PARKINSON'S DISEASE
     Route: 065

REACTIONS (2)
  - LIPOMA [None]
  - PAIN IN EXTREMITY [None]
